FAERS Safety Report 6855219-7 (Version None)
Quarter: 2010Q3

REPORT INFORMATION
  Report Type: 
  Country: None (occurrence: None)
  Receive Date: 20100718
  Receipt Date: 20100708
  Transmission Date: 20110219
  Serious: Yes (Hospitalization, Other)
  Sender: FDA-Public Use
  Company Number: FR-BRISTOL-MYERS SQUIBB COMPANY-15193782

PATIENT
  Age: 84 Year
  Sex: Female

DRUGS (7)
  1. GLUCOPHAGE [Suspect]
     Route: 048
     Dates: end: 20100528
  2. COKENZEN [Concomitant]
     Dates: end: 20100528
  3. INIPOMP [Concomitant]
  4. DIAMICRON [Concomitant]
     Dates: end: 20100528
  5. XELEVIA [Concomitant]
  6. COLCHIMAX [Concomitant]
     Indication: GOUT
     Dates: start: 20100412, end: 20100528
  7. ALLOPURINOL [Concomitant]
     Indication: GOUT
     Dates: start: 20100427, end: 20100528

REACTIONS (7)
  - BLOOD LACTIC ACID INCREASED [None]
  - DECREASED APPETITE [None]
  - DEHYDRATION [None]
  - DIARRHOEA [None]
  - HYPOGLYCAEMIA [None]
  - RENAL FAILURE ACUTE [None]
  - VOMITING [None]
